FAERS Safety Report 8539455-X (Version None)
Quarter: 2012Q3

REPORT INFORMATION
  Report Type: 
  Country: None (occurrence: None)
  Receive Date: 20120726
  Receipt Date: 20120720
  Transmission Date: 20120928
  Serious: No
  Sender: FDA-Public Use
  Company Number: PHHY2012CA019918

PATIENT
  Sex: Female

DRUGS (4)
  1. ZOLEDRONOC ACID [Suspect]
     Dosage: UNK
     Route: 042
     Dates: start: 20120603
  2. GLEEVEC [Concomitant]
     Indication: CHRONIC MYELOID LEUKAEMIA
  3. ZOLEDRONOC ACID [Suspect]
     Indication: OSTEOPOROSIS
     Route: 042
     Dates: start: 20100426
  4. ZOLEDRONOC ACID [Suspect]
     Route: 042
     Dates: start: 20110427

REACTIONS (6)
  - OCULAR HYPERAEMIA [None]
  - EYE IRRITATION [None]
  - EYE PAIN [None]
  - FATIGUE [None]
  - ASTHENIA [None]
  - EYE PRURITUS [None]
